FAERS Safety Report 14152417 (Version 1)
Quarter: 2017Q4

REPORT INFORMATION
  Report Type: Report from Study
  Country: US (occurrence: US)
  Receive Date: 20171102
  Receipt Date: 20171102
  Transmission Date: 20180321
  Serious: Yes (Hospitalization)
  Sender: FDA-Public Use
  Company Number: US-JNJFOC-20160721026

PATIENT
  Age: 69 Year
  Sex: Male

DRUGS (4)
  1. IBRUTINIB [Suspect]
     Active Substance: IBRUTINIB
     Indication: CHRONIC LYMPHOCYTIC LEUKAEMIA
     Dosage: CYCLE 1, 420 MG, QD
     Route: 048
     Dates: start: 20160602
  2. IBRUTINIB [Suspect]
     Active Substance: IBRUTINIB
     Indication: THERAPY NAIVE
     Dosage: CYCLE 1, 420 MG, QD
     Route: 048
     Dates: start: 20160602
  3. IBRUTINIB [Suspect]
     Active Substance: IBRUTINIB
     Indication: CHRONIC LYMPHOCYTIC LEUKAEMIA
     Dosage: CYCLE 2, 420 MG, QD
     Route: 048
     Dates: start: 20160630, end: 20160630
  4. IBRUTINIB [Suspect]
     Active Substance: IBRUTINIB
     Indication: THERAPY NAIVE
     Dosage: CYCLE 2, 420 MG, QD
     Route: 048
     Dates: start: 20160630, end: 20160630

REACTIONS (3)
  - Anaemia [Unknown]
  - Femur fracture [Recovering/Resolving]
  - Procedural haemorrhage [Recovered/Resolved]

NARRATIVE: CASE EVENT DATE: 20160630
